FAERS Safety Report 20874645 (Version 2)
Quarter: 2022Q3

REPORT INFORMATION
  Report Type: Spontaneous
  Country: US (occurrence: US)
  Receive Date: 20220525
  Receipt Date: 20220723
  Transmission Date: 20221026
  Serious: Yes (Death, Hospitalization)
  Sender: FDA-Public Use
  Company Number: US-JNJFOC-20220546931

PATIENT
  Sex: Female

DRUGS (1)
  1. BALVERSA [Suspect]
     Active Substance: ERDAFITINIB
     Indication: Product used for unknown indication
     Dosage: FOR 14 DAYS.?LAST KNOWN DATE OF DRUG ADMINISTRATION: 06-MAY-2022
     Route: 048

REACTIONS (2)
  - Death [Fatal]
  - Transfusion [Unknown]
